FAERS Safety Report 8521091-2 (Version None)
Quarter: 2012Q3

REPORT INFORMATION
  Report Type: 
  Country: None (occurrence: None)
  Receive Date: 20120719
  Receipt Date: 20120710
  Transmission Date: 20120928
  Serious: Yes (Other)
  Sender: FDA-Public Use
  Company Number: US-ASTRAZENECA-2012SE47702

PATIENT
  Age: 60 Year
  Sex: Female

DRUGS (1)
  1. ATACAND HCT [Suspect]
     Route: 048

REACTIONS (3)
  - MALIGNANT HYPERTENSION [None]
  - BRAIN CANCER METASTATIC [None]
  - SPINAL CORD NEOPLASM [None]
